FAERS Safety Report 5188496-1 (Version None)
Quarter: 2006Q4

REPORT INFORMATION
  Report Type: 
  Country: None (occurrence: None)
  Receive Date: 20061214
  Receipt Date: 20061207
  Transmission Date: 20070319
  Serious: Yes (Other)
  Sender: FDA-Public Use
  Company Number: 2006SP008022

PATIENT
  Sex: Female

DRUGS (3)
  1. INTRON A [Suspect]
     Indication: DRUG USE FOR UNKNOWN INDICATION
  2. PEG-INTRON [Suspect]
     Indication: DRUG USE FOR UNKNOWN INDICATION
  3. PEGASYS [Suspect]
     Indication: DRUG USE FOR UNKNOWN INDICATION

REACTIONS (2)
  - MALIGNANT ANORECTAL NEOPLASM [None]
  - SQUAMOUS CELL CARCINOMA [None]
